FAERS Safety Report 8049619-X (Version None)
Quarter: 2012Q1

REPORT INFORMATION
  Report Type: 
  Country: None (occurrence: None)
  Receive Date: 20120117
  Receipt Date: 20120103
  Transmission Date: 20120608
  Serious: Yes (Congenital Anomaly)
  Sender: FDA-Public Use
  Company Number: FR-ROCHE-1027247

PATIENT
  Sex: Female
  Weight: 2.4 kg

DRUGS (5)
  1. MYCOPHENOLATE MOFETIL (CELLCEPT) [Suspect]
     Indication: PRODUCT USED FOR UNKNOWN INDICATION
     Route: 064
     Dates: start: 20110302, end: 20110411
  2. LANTUS [Concomitant]
     Route: 064
  3. TACROLIMUS [Concomitant]
     Route: 064
     Dates: start: 20110302, end: 20111109
  4. ASPEGIC 325 [Concomitant]
     Route: 064
  5. NOVORAPID [Concomitant]
     Route: 064

REACTIONS (6)
  - ANOMALY OF EXTERNAL EAR CONGENITAL [None]
  - MATERNAL EXPOSURE TIMING UNSPECIFIED [None]
  - HYPOXIA [None]
  - ANOMALOUS PULMONARY VENOUS CONNECTION [None]
  - MULTIPLE CONGENITAL ABNORMALITIES [None]
  - CLEFT LIP AND PALATE [None]
